FAERS Safety Report 26182941 (Version 1)
Quarter: 2025Q4

REPORT INFORMATION
  Report Type: Other
  Country: TR (occurrence: TR)
  Receive Date: 20251221
  Receipt Date: 20251221
  Transmission Date: 20260117
  Serious: Yes (Life-Threatening, Hospitalization, Other)
  Sender: SERVIER
  Company Number: TR-SERVIER-S25018246

PATIENT

DRUGS (4)
  1. ONCASPAR [Suspect]
     Active Substance: PEGASPARGASE
     Indication: B precursor type acute leukaemia
     Dosage: 10.000 IU, DAYS 8, 11, 15, AND 18
     Route: 065
  2. DEXAMETHASONE [Concomitant]
     Active Substance: DEXAMETHASONE
     Indication: B precursor type acute leukaemia
     Dosage: 10 MG/M2, QD
     Route: 065
  3. VINCRISTINE [Concomitant]
     Active Substance: VINCRISTINE
     Indication: B precursor type acute leukaemia
     Dosage: UNK, 1X/WEEK (4 DOSES)
     Route: 065
  4. DOXORUBICIN [Concomitant]
     Active Substance: DOXORUBICIN
     Indication: B precursor type acute leukaemia
     Dosage: UNK, 1X/WEEK
     Route: 065

REACTIONS (3)
  - Pancreatitis [Recovering/Resolving]
  - Pancreatic pseudocyst [Recovering/Resolving]
  - Panniculitis [Recovering/Resolving]
